FAERS Safety Report 8355916-0 (Version None)
Quarter: 2012Q2

REPORT INFORMATION
  Report Type: 
  Country: None (occurrence: None)
  Receive Date: 20120514
  Receipt Date: 20120507
  Transmission Date: 20120825
  Serious: Yes (Hospitalization)
  Sender: FDA-Public Use
  Company Number: US-BAYER-2011-040418

PATIENT
  Age: 38 Year
  Sex: Female
  Weight: 88.435 kg

DRUGS (10)
  1. YASMIN [Suspect]
     Indication: UTERINE LEIOMYOMA
  2. CYCLOBENZAPRINE [Concomitant]
     Indication: MUSCLE STRAIN
     Dosage: 10 MG, PRN
     Dates: start: 20070809
  3. MORPHINE [Concomitant]
  4. YASMIN [Suspect]
     Indication: PREMENSTRUAL SYNDROME
  5. YASMIN [Suspect]
     Indication: MENSTRUATION IRREGULAR
  6. LORTAB [Concomitant]
  7. YASMIN [Suspect]
     Indication: CONTRACEPTION
     Dosage: UNK
     Route: 048
     Dates: start: 20061206, end: 20070811
  8. SYNTHROID [Concomitant]
     Indication: HYPOTHYROIDISM
  9. ACETAMINOPHEN [Concomitant]
     Indication: PAIN
     Dosage: UNK
     Dates: start: 20070809
  10. IBUPROFEN [Concomitant]

REACTIONS (12)
  - PLEURAL EFFUSION [None]
  - JOINT INJURY [None]
  - PULMONARY EMBOLISM [None]
  - EMOTIONAL DISTRESS [None]
  - GENERAL PHYSICAL HEALTH DETERIORATION [None]
  - DYSPNOEA [None]
  - CHEST PAIN [None]
  - PAIN [None]
  - PULMONARY HAEMORRHAGE [None]
  - TRAUMATIC LUNG INJURY [None]
  - ANXIETY [None]
  - BACK PAIN [None]
